FAERS Safety Report 11898360 (Version 1)
Quarter: 2016Q1

REPORT INFORMATION
  Report Type: Spontaneous
  Country: US (occurrence: None)
  Receive Date: 20160107
  Receipt Date: 20160107
  Transmission Date: 20160526
  Serious: No
  Sender: FDA-Public Use
  Company Number: None

PATIENT
  Age: 74 Year
  Sex: Female

DRUGS (2)
  1. TACROLIMUS 1MG CAPSULE DR. REDDYS [Suspect]
     Active Substance: TACROLIMUS
     Indication: TRANSPLANT
     Route: 048
     Dates: start: 20130820
  2. TACROLIMUS 1MG CAPSULE DR. REDDYS [Suspect]
     Active Substance: TACROLIMUS
     Indication: RENAL DISORDER
     Route: 048
     Dates: start: 20130820

REACTIONS (3)
  - Infection [None]
  - Labelled drug-drug interaction medication error [None]
  - Blood pressure increased [None]

NARRATIVE: CASE EVENT DATE: 201601
